FAERS Safety Report 7068132-X (Version None)
Quarter: 2010Q4

REPORT INFORMATION
  Report Type: 
  Country: None (occurrence: None)
  Receive Date: 20101028
  Receipt Date: 20101020
  Transmission Date: 20110411
  Serious: Yes (Hospitalization)
  Sender: FDA-Public Use
  Company Number: JP-ROCHE-695906

PATIENT
  Sex: Female

DRUGS (18)
  1. TOCILIZUMAB [Suspect]
     Indication: RHEUMATOID ARTHRITIS
     Route: 041
     Dates: start: 20090312, end: 20090312
  2. TOCILIZUMAB [Suspect]
     Route: 041
     Dates: start: 20090409, end: 20090409
  3. TOCILIZUMAB [Suspect]
     Route: 041
     Dates: start: 20090507, end: 20090507
  4. TOCILIZUMAB [Suspect]
     Route: 041
     Dates: start: 20090604, end: 20090604
  5. TOCILIZUMAB [Suspect]
     Route: 041
     Dates: start: 20090702, end: 20090702
  6. TOCILIZUMAB [Suspect]
     Route: 041
     Dates: start: 20090730, end: 20090730
  7. TOCILIZUMAB [Suspect]
     Route: 041
     Dates: start: 20090827
  8. RHEUMATREX [Concomitant]
     Route: 048
  9. PREDNISOLONE [Concomitant]
     Route: 048
     Dates: end: 20090424
  10. PREDNISOLONE [Concomitant]
     Route: 048
     Dates: start: 20090425, end: 20090522
  11. PREDNISOLONE [Concomitant]
     Route: 048
     Dates: start: 20090523
  12. FOLIAMIN [Concomitant]
     Dosage: FORM: PERORAL AGENT
     Route: 048
  13. MOBIC [Concomitant]
     Route: 048
  14. GASTER D [Concomitant]
     Route: 048
  15. VOLTAREN [Concomitant]
     Dosage: FORM:SUPPOSITORIAE RECTALE
     Route: 054
     Dates: start: 20090227
  16. KETOPROFEN [Concomitant]
     Dosage: FORM: TAPE
     Route: 061
     Dates: start: 20090307
  17. STICKZENOL A [Concomitant]
     Dosage: FORM:EXTERNAL APPLICATION LIQUID MEDICINE
     Route: 061
     Dates: start: 20081017, end: 20090307
  18. SALICYLIC ACID [Concomitant]
     Dosage: DRUG: ELADERM(ADRENAL EXTRACT_SALICYLIC ACID COMBINED DRUG), FORM: CRAM AND OINTMENT
     Route: 003
     Dates: start: 20090409

REACTIONS (2)
  - JOINT EFFUSION [None]
  - TINEA MANUUM [None]
